FAERS Safety Report 6861928-6 (Version None)
Quarter: 2010Q3

REPORT INFORMATION
  Report Type: 
  Country: None (occurrence: None)
  Receive Date: 20100720
  Receipt Date: 20100720
  Transmission Date: 20110219
  Serious: No
  Sender: FDA-Public Use
  Company Number: None

PATIENT
  Sex: Male
  Weight: 79.3795 kg

DRUGS (1)
  1. OPALESCENCE WHITENING GEL 35% ULTRADENT [Suspect]
     Indication: DENTAL COSMETIC PROCEDURE
     Dosage: SMALL AMT IN MOLDED TRAY, DAILY DENTAL, ONCE
     Route: 004
     Dates: start: 20100712, end: 20100712

REACTIONS (2)
  - GINGIVAL BLEEDING [None]
  - GINGIVAL PAIN [None]
